FAERS Safety Report 5237999-X (Version None)
Quarter: 2007Q1

REPORT INFORMATION
  Report Type: 
  Country: None (occurrence: None)
  Receive Date: 20070214
  Receipt Date: 20070205
  Transmission Date: 20070707
  Serious: Yes (Hospitalization)
  Sender: FDA-Public Use
  Company Number: MY-PFIZER INC-2006140686

PATIENT
  Sex: Female
  Weight: 48.8 kg

DRUGS (3)
  1. SU-011,248 [Suspect]
     Indication: METASTATIC RENAL CELL CARCINOMA
     Route: 048
     Dates: start: 20061012, end: 20061108
  2. CELEBREX [Concomitant]
     Route: 048
  3. ULTRACET [Concomitant]
     Route: 048
     Dates: start: 20060601

REACTIONS (2)
  - CARDIAC FAILURE [None]
  - HYPERBILIRUBINAEMIA [None]
